FAERS Safety Report 9725791 (Version 1)
Quarter: 2013Q4

REPORT INFORMATION
  Report Type: Not Available
  Country: GB (occurrence: GB)
  Receive Date: 20131203
  Receipt Date: 20131203
  Transmission Date: 20140711
  Serious: Yes (Other)
  Sender: FDA-Public Use
  Company Number: GB-ASTELLAS-2013EU010616

PATIENT
  Age: 71 Year
  Sex: Male

DRUGS (6)
  1. VESICARE [Suspect]
     Indication: POLLAKIURIA
     Dosage: 5 MG, UID/QD
     Route: 048
     Dates: start: 20131007, end: 20131014
  2. ASPIRIN [Concomitant]
     Dosage: 75 MG, UID/QD
     Route: 065
  3. QUININE SULPHATE [Concomitant]
     Dosage: 200 MG, UID/QD
     Route: 065
  4. SIMVASTATIN [Concomitant]
     Dosage: 40 MG, UID/QD
     Route: 065
  5. TAMSULOSIN [Concomitant]
     Dosage: 400 MG, UID/QD
     Route: 065
  6. TILDIEM [Concomitant]
     Dosage: 90 MG, BID
     Route: 065

REACTIONS (3)
  - Rash pruritic [Recovered/Resolved]
  - Pruritus [Recovered/Resolved]
  - Swelling [Recovered/Resolved]
